FAERS Safety Report 5536566-8 (Version None)
Quarter: 2008Q1

REPORT INFORMATION
  Report Type: 
  Country: None (occurrence: None)
  Receive Date: 20071204
  Receipt Date: 20071119
  Transmission Date: 20080703
  Serious: Yes (Disabling, Other)
  Sender: FDA-Public Use
  Company Number: 2007001627

PATIENT
  Age: 70 Year
  Sex: Male

DRUGS (11)
  1. TARCEVA [Suspect]
     Indication: LUNG NEOPLASM MALIGNANT
     Dosage: 150 MG (150 MG, QD); ORAL
     Route: 048
     Dates: start: 20070315
  2. ASPIRIN [Concomitant]
  3. CORVASAL (MOLSIDOMINE) [Concomitant]
  4. CELIPROLOL (CELIPROLOL) [Concomitant]
  5. MIPRAL (OMEPRAZOLE) [Concomitant]
  6. LASIX [Concomitant]
  7. VOLTAREN [Concomitant]
  8. LYRICA [Concomitant]
  9. POTASSIUM CHLORIDE [Concomitant]
  10. OROCAL D3 [Concomitant]
  11. TADENAN (PYGEUM AFRICANUM) [Concomitant]

REACTIONS (1)
  - PARONYCHIA [None]
